FAERS Safety Report 9278432 (Version 1)
Quarter: 2013Q2

REPORT INFORMATION
  Report Type: Spontaneous
  Country: US (occurrence: None)
  Receive Date: 20130506
  Receipt Date: 20130506
  Transmission Date: 20140414
  Serious: Yes (Other)
  Sender: FDA-Public Use
  Company Number: None

PATIENT
  Age: 51 Year
  Sex: Male
  Weight: 120.2 kg

DRUGS (1)
  1. IMODIUM 2MG GENERIC MANUFACTURER [Suspect]
     Indication: DIARRHOEA
     Route: 048
     Dates: start: 19880101, end: 20130501

REACTIONS (4)
  - Depression [None]
  - Diarrhoea [None]
  - Drug interaction [None]
  - Food interaction [None]
